FAERS Safety Report 12423176 (Version 1)
Quarter: 2016Q2

REPORT INFORMATION
  Report Type: Spontaneous
  Country: US (occurrence: None)
  Receive Date: 20160531
  Receipt Date: 20160531
  Transmission Date: 20160815
  Serious: Yes (Hospitalization, Disabling, Other)
  Sender: FDA-Public Use
  Company Number: None

PATIENT
  Age: 58 Year
  Sex: Female
  Weight: 72.58 kg

DRUGS (7)
  1. VITAMIN C [Concomitant]
     Active Substance: ASCORBIC ACID
  2. A AND D NOS [Concomitant]
     Active Substance: DIMETHICONE\ZINC OXIDE OR PETROLATUM
  3. CALCIUM [Concomitant]
     Active Substance: CALCIUM
  4. VITAMIN E [Concomitant]
     Active Substance: .ALPHA.-TOCOPHEROL
  5. AMLODIPINE BESYLATE 5 MG. TAB LU, 5 MG [Suspect]
     Active Substance: AMLODIPINE BESYLATE
     Indication: BLOOD PRESSURE INCREASED
     Route: 048
     Dates: start: 20151004, end: 20151006
  6. LEVOTHYROXINE. [Concomitant]
     Active Substance: LEVOTHYROXINE
  7. METOPROLOL. [Concomitant]
     Active Substance: METOPROLOL

REACTIONS (10)
  - Extrasystoles [None]
  - Anxiety [None]
  - Blood pressure increased [None]
  - Heart rate irregular [None]
  - Palpitations [None]
  - Fear [None]
  - Product substitution issue [None]
  - Chest pain [None]
  - Activities of daily living impaired [None]
  - Feeling abnormal [None]

NARRATIVE: CASE EVENT DATE: 20151004
